FAERS Safety Report 10580147 (Version 1)
Quarter: 2014Q4

REPORT INFORMATION
  Report Type: Spontaneous
  Country: IT (occurrence: IT)
  Receive Date: 20141112
  Receipt Date: 20141112
  Transmission Date: 20150529
  Serious: Yes (Hospitalization)
  Sender: FDA-Public Use
  Company Number: IT-WATSON-2014-24154

PATIENT
  Age: 70 Year
  Sex: Female
  Weight: 67 kg

DRUGS (14)
  1. ATENOLOL (UNKNOWN) [Suspect]
     Active Substance: ATENOLOL
     Indication: HYPERTENSION
     Dosage: 50 MG, DAILY REDUCED TO 25 MG, DAILY
     Route: 048
     Dates: start: 20140122, end: 20140912
  2. CARDIOASPIRIN [Concomitant]
     Active Substance: ASPIRIN
     Indication: MYOCARDIAL ISCHAEMIA
     Dosage: 100 MG, DAILY
     Route: 048
  3. SANDIMMUN NEORAL [Concomitant]
     Active Substance: CYCLOSPORINE
     Indication: RENAL TRANSPLANT
     Dosage: 75 MG, DAILY
     Route: 048
  4. HUMALOG [Concomitant]
     Active Substance: INSULIN LISPRO
     Indication: DIABETES MELLITUS
     Dosage: 10 INTERNATIONAL UNITS, DAILY
     Route: 058
  5. HUMALOG MIX50 [Concomitant]
     Indication: DIABETES MELLITUS
     Dosage: 16 INTERNATIONAL UNITS, DAILY
     Route: 058
  6. EUTIROX [Concomitant]
     Active Substance: LEVOTHYROXINE SODIUM
     Indication: HYPOTHYROIDISM
     Dosage: 100 UG MICROGRAMS, DAILY
     Route: 048
  7. ZYLORIC [Concomitant]
     Active Substance: ALLOPURINOL
     Indication: PRODUCT USED FOR UNKNOWN INDICATION
     Dosage: 150 MG, DAILY
     Route: 048
  8. MYFENAX                            /00372303/ [Concomitant]
     Indication: RENAL TRANSPLANT
     Dosage: 1000 MG, DAILY
     Route: 048
  9. ANTRA                              /00661201/ [Concomitant]
     Active Substance: OMEPRAZOLE
     Indication: PRODUCT USED FOR UNKNOWN INDICATION
     Dosage: 20 MG, DAILY
     Route: 048
  10. MINITRAN                           /00003201/ [Concomitant]
     Indication: PRODUCT USED FOR UNKNOWN INDICATION
     Dosage: 1 DF, DAILY
     Route: 062
  11. CALCIUM SANDOZ                     /00060701/ [Concomitant]
     Indication: OSTEOPOROSIS
     Dosage: 500 MG, DAILY
     Route: 048
  12. SEACOR [Concomitant]
     Active Substance: OMEGA-3 FATTY ACIDS
     Indication: PRODUCT USED FOR UNKNOWN INDICATION
     Dosage: 300 MG, DAILY
     Route: 048
  13. INEGY [Concomitant]
     Active Substance: EZETIMIBE\SIMVASTATIN
     Indication: PRODUCT USED FOR UNKNOWN INDICATION
     Dosage: 10 MG/40MG TABLETS, DAILY
     Route: 048
  14. CANDESARTAN [Concomitant]
     Active Substance: CANDESARTAN
     Indication: PRODUCT USED FOR UNKNOWN INDICATION
     Dosage: 2 MG, DAILY
     Route: 048

REACTIONS (1)
  - Bradycardia [Recovered/Resolved]

NARRATIVE: CASE EVENT DATE: 20140909
